FAERS Safety Report 9590814 (Version 2)
Quarter: 2013Q4

REPORT INFORMATION
  Report Type: Spontaneous
  Country: US (occurrence: US)
  Receive Date: 20131003
  Receipt Date: 20131003
  Transmission Date: 20140711
  Serious: No
  Sender: FDA-Public Use
  Company Number: US-AMGEN-USASP2012066253

PATIENT
  Age: 53 Year
  Sex: Female

DRUGS (2)
  1. ENBREL [Suspect]
     Indication: PSORIASIS
     Dosage: 50 MG, 2 TIMES/WK
     Route: 058
     Dates: start: 20120928
  2. HUMIRA [Suspect]
     Indication: PSORIASIS
     Dosage: 40 MG, QWK
     Route: 058
     Dates: start: 201208, end: 20120929

REACTIONS (1)
  - Psoriasis [Not Recovered/Not Resolved]
